FAERS Safety Report 8252857-4 (Version None)
Quarter: 2012Q2

REPORT INFORMATION
  Report Type: 
  Country: None (occurrence: None)
  Receive Date: 20120402
  Receipt Date: 20120227
  Transmission Date: 20120825
  Serious: No
  Sender: FDA-Public Use
  Company Number: US-ABBOTT-12P-163-0909651-00

PATIENT
  Age: 2 Year
  Sex: Female

DRUGS (2)
  1. ANDROGEL [Suspect]
     Indication: EXPOSURE VIA FATHER
  2. ANDROGEL [Suspect]
     Indication: EXPOSURE VIA FATHER

REACTIONS (2)
  - ACCIDENTAL EXPOSURE [None]
  - HAIR GROWTH ABNORMAL [None]
